FAERS Safety Report 8517777-6 (Version None)
Quarter: 2012Q3

REPORT INFORMATION
  Report Type: 
  Country: None (occurrence: None)
  Receive Date: 20120712
  Receipt Date: 20120712
  Transmission Date: 20120928
  Serious: Yes (Life-Threatening, Hospitalization)
  Sender: FDA-Public Use
  Company Number: None

PATIENT
  Age: 84 Year
  Sex: Female
  Weight: 70.7 kg

DRUGS (1)
  1. RIVAROXABAN 20 MG JANSSEN [Suspect]
     Indication: ATRIAL FIBRILLATION
     Dosage: 20 MG DAILY PO
     Route: 048

REACTIONS (5)
  - ASTHENIA [None]
  - PARAESTHESIA [None]
  - FALL [None]
  - HAEMORRHAGE INTRACRANIAL [None]
  - PARTIAL SEIZURES [None]
